FAERS Safety Report 7608388-5 (Version None)
Quarter: 2011Q3

REPORT INFORMATION
  Report Type: 
  Country: None (occurrence: None)
  Receive Date: 20110713
  Receipt Date: 20110713
  Transmission Date: 20111222
  Serious: No
  Sender: FDA-Public Use
  Company Number: None

PATIENT
  Age: 49 Year
  Sex: Female
  Weight: 83.0083 kg

DRUGS (1)
  1. PROTONIX [Suspect]
     Indication: GASTROOESOPHAGEAL REFLUX DISEASE
     Dosage: ONE TABLET DAILY ORAL
     Route: 048
     Dates: start: 20070620

REACTIONS (5)
  - DYSPEPSIA [None]
  - FLATULENCE [None]
  - ABDOMINAL PAIN [None]
  - CONSTIPATION [None]
  - PRODUCT QUALITY ISSUE [None]
